FAERS Safety Report 18898868 (Version 3)
Quarter: 2021Q1

REPORT INFORMATION
  Report Type: Spontaneous
  Country: IS (occurrence: IS)
  Receive Date: 20210216
  Receipt Date: 20210301
  Transmission Date: 20210420
  Serious: Yes (Hospitalization)
  Sender: FDA-Public Use
  Company Number: IS-JNJFOC-20210225925

PATIENT
  Age: 6 Decade
  Sex: Female

DRUGS (3)
  1. IBUPROFEN. [Concomitant]
     Active Substance: IBUPROFEN
     Indication: PAIN
     Dosage: ONCE IN WHILE (PERHAPS ONCE OR TWICE DURING THE WEEK BEFORE GOING TO THE HOSPITAL)
  2. PANODIL [Concomitant]
     Active Substance: ACETAMINOPHEN
     Indication: PAIN
     Dosage: ONCE IN WHILE (ONCE OR TWICE DURING THE WEEK BEFORE GOING TO THE HOSPITAL)
  3. CONCERTA [Suspect]
     Active Substance: METHYLPHENIDATE HYDROCHLORIDE
     Indication: PRODUCT USED FOR UNKNOWN INDICATION
     Dosage: 18 MG + 54 MG PER DAY
     Route: 048
     Dates: start: 2011

REACTIONS (1)
  - Nephrolithiasis [Recovered/Resolved]

NARRATIVE: CASE EVENT DATE: 202101
